FAERS Safety Report 8299725-X (Version None)
Quarter: 2012Q2

REPORT INFORMATION
  Report Type: 
  Country: None (occurrence: None)
  Receive Date: 20120419
  Receipt Date: 20120412
  Transmission Date: 20120825
  Serious: Yes (Hospitalization, Other)
  Sender: FDA-Public Use
  Company Number: US-MPIJNJ-2012-02159

PATIENT
  Sex: Male

DRUGS (2)
  1. VELCADE [Suspect]
     Dosage: 2.8 MG, CYCLIC
     Route: 042
     Dates: start: 20120106, end: 20120123
  2. DECADRON [Suspect]
     Indication: LEUKAEMIA PLASMACYTIC
     Dosage: UNK
     Dates: end: 20120123

REACTIONS (10)
  - NON-CARDIOGENIC PULMONARY OEDEMA [None]
  - HYPOTENSION [None]
  - PNEUMONITIS [None]
  - RESPIRATORY FAILURE [None]
  - SEPSIS [None]
  - CERVICAL MYELOPATHY [None]
  - RENAL FAILURE ACUTE [None]
  - CARDIOGENIC SHOCK [None]
  - MENTAL STATUS CHANGES [None]
  - CERVICAL CORD COMPRESSION [None]
